FAERS Safety Report 5163742-9 (Version None)
Quarter: 2006Q4

REPORT INFORMATION
  Report Type: 
  Country: None (occurrence: None)
  Receive Date: 20061127
  Receipt Date: 20061127
  Transmission Date: 20070319
  Serious: Yes (Other)
  Sender: FDA-Public Use
  Company Number: None

PATIENT
  Age: 32 Year
  Sex: Male
  Weight: 104.3273 kg

DRUGS (2)
  1. CIPROFLOXIN [Suspect]
     Indication: PROSTATITIS
     Dosage: 1 DAILY PO
     Route: 048
  2. LEVAQUIN [Suspect]
     Indication: PROSTATITIS
     Dosage: 1 DAILY PO
     Route: 048

REACTIONS (3)
  - EXERCISE TOLERANCE DECREASED [None]
  - INSOMNIA [None]
  - MUSCLE CONTRACTIONS INVOLUNTARY [None]
